FAERS Safety Report 15700464 (Version 1)
Quarter: 2018Q4

REPORT INFORMATION
  Report Type: Report from Study
  Country: US (occurrence: US)
  Receive Date: 20181207
  Receipt Date: 20181207
  Transmission Date: 20190205
  Serious: No
  Sender: FDA-Public Use
  Company Number: US-ALEXION PHARMACEUTICALS INC.-A201815924

PATIENT
  Sex: Female

DRUGS (1)
  1. SOLIRIS [Suspect]
     Active Substance: ECULIZUMAB
     Indication: PAROXYSMAL NOCTURNAL HAEMOGLOBINURIA
     Dosage: UNK
     Route: 065

REACTIONS (14)
  - Haemoglobin decreased [Unknown]
  - Mean cell volume increased [Unknown]
  - Serum ferritin increased [Unknown]
  - Neutrophil count decreased [Unknown]
  - Blood fibrinogen increased [Unknown]
  - Basophil percentage increased [Unknown]
  - Blood immunoglobulin A increased [Unknown]
  - Blood glucose increased [Unknown]
  - White blood cell count decreased [Unknown]
  - Mean platelet volume decreased [Unknown]
  - Blood gonadotrophin increased [Unknown]
  - Haematocrit decreased [Unknown]
  - Red blood cell count decreased [Unknown]
  - Blood urine present [Unknown]
